FAERS Safety Report 7586250-4 (Version None)
Quarter: 2011Q3

REPORT INFORMATION
  Report Type: 
  Country: None (occurrence: None)
  Receive Date: 20110701
  Receipt Date: 20110629
  Transmission Date: 20111222
  Serious: Yes (Death, Hospitalization, Other)
  Sender: FDA-Public Use
  Company Number: US-AMGEN-USASP2011003069

PATIENT
  Age: 96 Year
  Sex: Female

DRUGS (17)
  1. DEXAMETHASONE [Concomitant]
     Dosage: 20 MG, UNK
     Route: 042
  2. CLONAZEPAM [Concomitant]
     Dosage: 0.5 MG, UNK
  3. CORTICOSTEROIDS [Concomitant]
     Indication: IDIOPATHIC THROMBOCYTOPENIC PURPURA
  4. NORCO [Concomitant]
     Dosage: UNK
  5. OMEPRAZOLE [Concomitant]
     Dosage: 40 MG, QD
  6. LANTUS [Concomitant]
     Dosage: 37 UNIT, UNK
  7. PREDNISONE [Concomitant]
     Dosage: 20 MG, UNK
  8. CIPROFLOXACIN [Concomitant]
     Dosage: 250 MG, Q12H
  9. NPLATE [Suspect]
     Indication: IDIOPATHIC THROMBOCYTOPENIC PURPURA
     Dosage: 55 A?G, ONE TIME DOSE
     Route: 058
     Dates: start: 20101122, end: 20101122
  10. BUMEX [Concomitant]
     Dosage: 1 MG, UNK
  11. METOPROLOL TARTRATE [Concomitant]
     Dosage: 100 MG, QD
  12. DOCUSATE [Concomitant]
     Dosage: UNK
  13. CLONIDINE [Concomitant]
     Dosage: 0.1 MG, UNK
  14. LEVOTHYROXINE SODIUM [Concomitant]
     Dosage: 125 A?G, QD
  15. TYLENOL (CAPLET) [Concomitant]
  16. XANAX [Concomitant]
     Dosage: 0.25 MG, UNK
  17. HYDRALAZINE HCL [Concomitant]
     Dosage: 25 MG, TID

REACTIONS (13)
  - DEATH [None]
  - HYPOPHAGIA [None]
  - HYPERNATRAEMIA [None]
  - ECCHYMOSIS [None]
  - DECREASED APPETITE [None]
  - SKIN INJURY [None]
  - OEDEMA [None]
  - RENAL FAILURE ACUTE [None]
  - THROMBOCYTOPENIA [None]
  - DEHYDRATION [None]
  - CEREBROVASCULAR ACCIDENT [None]
  - FAILURE TO THRIVE [None]
  - BACK PAIN [None]
